FAERS Safety Report 6669524-0 (Version None)
Quarter: 2010Q2

REPORT INFORMATION
  Report Type: 
  Country: None (occurrence: None)
  Receive Date: 20100406
  Receipt Date: 20100401
  Transmission Date: 20101027
  Serious: Yes (Death)
  Sender: FDA-Public Use
  Company Number: PHHY2009JP53290

PATIENT
  Age: 76 Year
  Sex: Male

DRUGS (2)
  1. NEORAL [Suspect]
     Dosage: 175 MG DAILY
     Route: 048
     Dates: start: 20090817, end: 20090918
  2. DESFERAL [Suspect]
     Indication: IRON OVERLOAD
     Dosage: 500 MG DAILY
     Route: 030
     Dates: start: 20091111, end: 20091127

REACTIONS (2)
  - BLOOD CREATININE INCREASED [None]
  - RENAL IMPAIRMENT [None]
